FAERS Safety Report 19811752 (Version 2)
Quarter: 2021Q3

REPORT INFORMATION
  Report Type: Spontaneous
  Country: PT (occurrence: PT)
  Receive Date: 20210909
  Receipt Date: 20210920
  Transmission Date: 20211014
  Serious: Yes (Life-Threatening, Hospitalization, Other)
  Sender: FDA-Public Use
  Company Number: PT-MYLANLABS-2021M1057149

PATIENT
  Age: 67 Year
  Sex: Female

DRUGS (10)
  1. METHOTREXATE. [Suspect]
     Active Substance: METHOTREXATE
     Dosage: 3.5 GRAM PER SQUARE METRE (3.5 G/M2 (R?MVP 5 CYCLES))
     Dates: start: 201503
  2. METHOTREXATE. [Suspect]
     Active Substance: METHOTREXATE
     Indication: CENTRAL NERVOUS SYSTEM LYMPHOMA
     Dosage: 7500 MILLIGRAM/SQ. METER (7.5 G/M2 5 CYCLES ALTERNATE WITH MTX )
     Route: 037
  3. RITUXIMAB. [Suspect]
     Active Substance: RITUXIMAB
     Indication: CENTRAL NERVOUS SYSTEM LYMPHOMA
     Dosage: 500 MILLIGRAM/SQ. METER, CYCLE (500 MG/M2, CYCLIC (3 CYCLES))
     Route: 050
     Dates: start: 201503
  4. PROCARBAZINE [Suspect]
     Active Substance: PROCARBAZINE
     Indication: CENTRAL NERVOUS SYSTEM LYMPHOMA
     Dosage: 100 MILLIGRAM/SQ. METER, QD (100 MG/M2, DAILY, 3 CYCLES), 100 MG/M2/DAY (R?MVP 5 CYCLES)
     Route: 065
     Dates: start: 201503
  5. RITUXIMAB. [Suspect]
     Active Substance: RITUXIMAB
     Indication: CENTRAL NERVOUS SYSTEM LYMPHOMA
     Dosage: 1 MG/0.1 ML (4 WEEKLY CYCLES OF INTRAOCULAR)
  6. RITUXIMAB. [Suspect]
     Active Substance: RITUXIMAB
     Dosage: 500 MILLIGRAM/SQ. METER (500 MG/M2, 5 CYCLES)
  7. RITUXIMAB. [Suspect]
     Active Substance: RITUXIMAB
     Dosage: 500 MILLIGRAM/SQ. METER (500 MG/M2 (R?MVP5 CYCLES)
     Dates: start: 20150315
  8. VINCRISTINE [Suspect]
     Active Substance: VINCRISTINE
     Indication: CENTRAL NERVOUS SYSTEM LYMPHOMA
     Dosage: 1.4 MILLIGRAM/SQ. METER, CYCLE (1.4 MG/M2, CYCLIC (3 CYCLES)), 1.4 MG/M2 (R?MVP 5 CYCLES)
     Dates: start: 201503
  9. RITUXIMAB. [Suspect]
     Active Substance: RITUXIMAB
     Dosage: 500 MILLIGRAM/SQ. METER (500 MG/M2 TO COMPLETE 12 CYCLES)
  10. METHOTREXATE. [Suspect]
     Active Substance: METHOTREXATE
     Indication: CENTRAL NERVOUS SYSTEM LYMPHOMA
     Dosage: 3500 MILLIGRAM/SQ. METER, CYCLE (3.5 G/M2 5 CYCLES ALTERNATE WEEKLY WITH INTRA?CSF MTX)
     Route: 050
     Dates: start: 201503

REACTIONS (7)
  - Disease progression [Recovered/Resolved]
  - Pneumocystis jirovecii pneumonia [Unknown]
  - Therapy non-responder [Unknown]
  - Headache [Recovered/Resolved]
  - Product use issue [Unknown]
  - Uveitis [Recovered/Resolved]
  - Meningism [Recovered/Resolved]

NARRATIVE: CASE EVENT DATE: 2015
